FAERS Safety Report 4707741-7 (Version None)
Quarter: 2005Q2

REPORT INFORMATION
  Report Type: 
  Country: None (occurrence: None)
  Receive Date: 20050629
  Receipt Date: 20050517
  Transmission Date: 20051028
  Serious: No
  Sender: FDA-Public Use
  Company Number: 05P-163-0300669

PATIENT
  Age: 59 Year
  Sex: Female
  Weight: 61.2356 kg

DRUGS (6)
  1. HUMIRA [Suspect]
     Indication: RHEUMATOID ARTHRITIS
     Dosage: 40 MG, 1 IN 2 WK, SUBCUTANEOUS
     Route: 058
     Dates: start: 20050101, end: 20050401
  2. HUMIRA [Suspect]
     Indication: RHEUMATOID ARTHRITIS
     Dosage: 40 MG, 1 IN 2 WK, SUBCUTANEOUS
     Route: 058
     Dates: start: 20050501
  3. ATENOLOL [Concomitant]
  4. ASCORBIC ACID [Concomitant]
  5. MAGNESIUM [Concomitant]
  6. CYANOCOBALAMIN [Concomitant]

REACTIONS (3)
  - CANDIDIASIS [None]
  - LYMPHADENOPATHY [None]
  - VISION BLURRED [None]
